FAERS Safety Report 25995775 (Version 2)
Quarter: 2025Q4

REPORT INFORMATION
  Report Type: Spontaneous
  Country: US (occurrence: US)
  Receive Date: 20251104
  Receipt Date: 20251111
  Transmission Date: 20260118
  Serious: Yes (Other)
  Sender: BAUSCH AND LOMB
  Company Number: US-BAUSCHBL-2025BNL031018

PATIENT

DRUGS (3)
  1. OFLOXACIN OPHTHALMIC [Suspect]
     Active Substance: OFLOXACIN
     Indication: Product used for unknown indication
     Route: 065
  2. OFLOXACIN OPHTHALMIC [Suspect]
     Active Substance: OFLOXACIN
  3. PREDNISOLONE ACETATE [Suspect]
     Active Substance: PREDNISOLONE ACETATE
     Indication: Product used for unknown indication

REACTIONS (2)
  - Blindness unilateral [Unknown]
  - Suspected product contamination [Unknown]
